FAERS Safety Report 12684667 (Version 1)
Quarter: 2016Q3

REPORT INFORMATION
  Report Type: Spontaneous
  Country: DE (occurrence: DE)
  Receive Date: 20160825
  Receipt Date: 20160825
  Transmission Date: 20161109
  Serious: Yes (Other)
  Sender: FDA-Public Use
  Company Number: GXKR2016DE003954

PATIENT
  Sex: Female

DRUGS (3)
  1. VALACICLOVIR HEXAL [Suspect]
     Active Substance: VALACYCLOVIR HYDROCHLORIDE
     Indication: HERPES ZOSTER
     Dosage: 1000 MG THREE TIMES DAILY DURING ACUTE PHASIS
     Route: 048
  2. VALACICLOVIR HEXAL [Suspect]
     Active Substance: VALACYCLOVIR HYDROCHLORIDE
     Dosage: 500 MG DAILY
     Route: 048
     Dates: start: 201606
  3. PREDNISOLON [Concomitant]
     Active Substance: PREDNISOLONE
     Indication: PRODUCT USED FOR UNKNOWN INDICATION

REACTIONS (5)
  - Fatigue [Unknown]
  - Renal pain [Unknown]
  - Dizziness [Unknown]
  - Myopathy [Unknown]
  - Sudden hearing loss [Unknown]
